FAERS Safety Report 9086196 (Version 3)
Quarter: 2013Q2

REPORT INFORMATION
  Report Type: Report from Study
  Country: BE (occurrence: BE)
  Receive Date: 20130131
  Receipt Date: 20130515
  Transmission Date: 20140414
  Serious: Yes (Hospitalization)
  Sender: FDA-Public Use
  Company Number: BE-GLAXOSMITHKLINE-Z0018094A

PATIENT
  Age: 40 Year
  Sex: Male
  Weight: 88.1 kg

DRUGS (5)
  1. OFATUMUMAB [Suspect]
     Indication: DIFFUSE LARGE B-CELL LYMPHOMA RECURRENT
     Dosage: 1000MG CYCLIC
     Route: 042
     Dates: start: 20121016
  2. DEXAMETHASONE [Suspect]
     Indication: DIFFUSE LARGE B-CELL LYMPHOMA RECURRENT
     Dosage: 40MG EVERY 3 WEEKS
     Route: 042
     Dates: start: 20121017, end: 20121128
  3. CISPLATIN [Suspect]
     Indication: DIFFUSE LARGE B-CELL LYMPHOMA RECURRENT
     Dosage: 100MGM2 EVERY 3 WEEKS
     Route: 042
     Dates: start: 20121017, end: 20121129
  4. CYTARABINE [Suspect]
     Indication: DIFFUSE LARGE B-CELL LYMPHOMA RECURRENT
     Dosage: 2GM2 EVERY 3 WEEKS
     Route: 042
     Dates: start: 20121018, end: 20121130
  5. EUSAPRIM FORTE [Suspect]
     Indication: ANTIVIRAL PROPHYLAXIS

REACTIONS (1)
  - Febrile neutropenia [Recovered/Resolved]
